FAERS Safety Report 21788797 (Version 1)
Quarter: 2022Q4

REPORT INFORMATION
  Report Type: Spontaneous
  Country: US (occurrence: US)
  Receive Date: 20221228
  Receipt Date: 20221228
  Transmission Date: 20230113
  Serious: Yes (Life-Threatening, Hospitalization, Other)
  Sender: FDA-Public Use
  Company Number: US-PFIZER INC-202201392136

PATIENT
  Age: 32 Year
  Sex: Male

DRUGS (2)
  1. SILVER SULFADIAZENE [Suspect]
     Active Substance: SILVER SULFADIAZINE
     Indication: Thermal burn
     Dosage: UNK
     Route: 061
  2. BACITRACIN [Suspect]
     Active Substance: BACITRACIN
     Indication: Thermal burn
     Dosage: UNK

REACTIONS (1)
  - Drug ineffective [Recovering/Resolving]
